FAERS Safety Report 20215832 (Version 4)
Quarter: 2022Q1

REPORT INFORMATION
  Report Type: Spontaneous
  Country: US (occurrence: US)
  Receive Date: 20211222
  Receipt Date: 20220212
  Transmission Date: 20220423
  Serious: Yes (Hospitalization, Other)
  Sender: FDA-Public Use
  Company Number: US-UNITED THERAPEUTICS-UNT-2021-024046

PATIENT
  Age: 73 Year
  Sex: Female
  Weight: 72.562 kg

DRUGS (5)
  1. TYVASO [Suspect]
     Active Substance: TREPROSTINIL
     Indication: Pulmonary arterial hypertension
     Dosage: UNK
     Dates: start: 20210916
  2. TYVASO [Suspect]
     Active Substance: TREPROSTINIL
     Dosage: 18-72 ?G, QID
     Dates: start: 2021
  3. TYVASO [Suspect]
     Active Substance: TREPROSTINIL
     Dosage: UNK
     Dates: start: 2021
  4. TYVASO [Suspect]
     Active Substance: TREPROSTINIL
     Dosage: 66 ?G, QID
  5. AMBRISENTAN [Concomitant]
     Active Substance: AMBRISENTAN
     Indication: Product used for unknown indication
     Dosage: UNK
     Route: 065

REACTIONS (8)
  - Hip fracture [Recovered/Resolved]
  - Fall [Recovered/Resolved with Sequelae]
  - Productive cough [Recovering/Resolving]
  - Dyspnoea exertional [Recovering/Resolving]
  - Nausea [Not Recovered/Not Resolved]
  - Flushing [Unknown]
  - Abdominal discomfort [Unknown]
  - Epistaxis [Unknown]

NARRATIVE: CASE EVENT DATE: 20211116
